FAERS Safety Report 11836407 (Version 4)
Quarter: 2016Q1

REPORT INFORMATION
  Report Type: Report from Study
  Country: US (occurrence: US)
  Receive Date: 20151215
  Receipt Date: 20160111
  Transmission Date: 20160525
  Serious: Yes (Death, Hospitalization, Other)
  Sender: FDA-Public Use
  Company Number: US-B.I. PHARMACEUTICALS,INC./RIDGEFIELD-2015-BI-68792II

PATIENT
  Age: 79 Year
  Sex: Male
  Weight: 92 kg

DRUGS (2)
  1. CETUXIMAB [Suspect]
     Active Substance: CETUXIMAB
     Indication: NON-SMALL CELL LUNG CANCER
     Route: 065
     Dates: start: 20151009, end: 20151120
  2. BIBW 2992 [Suspect]
     Active Substance: AFATINIB
     Indication: NON-SMALL CELL LUNG CANCER
     Route: 065
     Dates: start: 20151106, end: 20151203

REACTIONS (14)
  - Sepsis [Unknown]
  - Stomatitis [Unknown]
  - Sinusitis [Unknown]
  - Nasal congestion [Unknown]
  - VIth nerve disorder [Unknown]
  - Fatigue [Not Recovered/Not Resolved]
  - Dehydration [Not Recovered/Not Resolved]
  - Rash maculo-papular [Not Recovered/Not Resolved]
  - Headache [Unknown]
  - Hypoalbuminaemia [Unknown]
  - Hyperglycaemia [Not Recovered/Not Resolved]
  - Cardio-respiratory arrest [Fatal]
  - Wheezing [Unknown]
  - Vision blurred [Unknown]

NARRATIVE: CASE EVENT DATE: 20151125
